FAERS Safety Report 7429161-7 (Version None)
Quarter: 2011Q2

REPORT INFORMATION
  Report Type: 
  Country: None (occurrence: None)
  Receive Date: 20110421
  Receipt Date: 20110412
  Transmission Date: 20111010
  Serious: Yes (Other)
  Sender: FDA-Public Use
  Company Number: CH-ASTRAZENECA-2011SE21230

PATIENT
  Age: 87 Year
  Sex: Female

DRUGS (9)
  1. SORTIS [Suspect]
     Route: 048
     Dates: start: 20050101, end: 20110211
  2. ZOLOFT [Suspect]
     Route: 048
     Dates: start: 20100808, end: 20110217
  3. CALCIMAGON D3 [Concomitant]
     Route: 048
     Dates: start: 20101101
  4. TRITTICO [Suspect]
     Route: 048
     Dates: start: 20100101, end: 20110211
  5. ASPIRIN [Concomitant]
  6. SEROQUEL [Suspect]
     Route: 048
     Dates: start: 20100819, end: 20110214
  7. DIOVAN [Concomitant]
     Route: 048
     Dates: end: 20110214
  8. DISTRANEURIN [Concomitant]
     Route: 048
     Dates: start: 20101101
  9. DIOVAN [Concomitant]
     Dates: start: 20110214

REACTIONS (1)
  - HEPATOCELLULAR INJURY [None]
